FAERS Safety Report 12942736 (Version 3)
Quarter: 2016Q4

REPORT INFORMATION
  Report Type: Spontaneous
  Country: ES (occurrence: ES)
  Receive Date: 20161114
  Receipt Date: 20161125
  Transmission Date: 20170207
  Serious: Yes (Hospitalization, Other)
  Sender: FDA-Public Use
  Company Number: ES-TAKEDA-2016MPI009723

PATIENT
  Age: 77 Year
  Sex: Male
  Weight: 76 kg

DRUGS (21)
  1. PREDNISONE. [Suspect]
     Active Substance: PREDNISONE
     Indication: PLASMA CELL MYELOMA
     Dosage: 100 MG, 1/WEEK
     Route: 042
     Dates: start: 20160227, end: 20160229
  2. MELPHALAN [Suspect]
     Active Substance: MELPHALAN
     Indication: PLASMA CELL MYELOMA
     Dosage: 16 MG, UNK
     Route: 048
     Dates: start: 20160229, end: 20160229
  3. ATORVASTATIN [Concomitant]
     Active Substance: ATORVASTATIN
     Indication: DYSLIPIDAEMIA
     Dosage: 40 MG, QD
     Route: 048
  4. ONDANSETRON [Concomitant]
     Active Substance: ONDANSETRON
     Indication: VOMITING
     Dosage: 8 MG, TID
     Route: 042
     Dates: start: 20160307
  5. ONDANSETRON [Concomitant]
     Active Substance: ONDANSETRON
     Indication: NAUSEA
     Dosage: 8 MG, UNK
     Route: 042
     Dates: start: 20160713, end: 20160714
  6. VELCADE [Suspect]
     Active Substance: BORTEZOMIB
     Indication: PLASMA CELL MYELOMA
     Dosage: 2.42 MG, 1/WEEK
     Route: 065
     Dates: start: 20160226, end: 20160307
  7. MELPHALAN [Suspect]
     Active Substance: MELPHALAN
     Dosage: 16 MG, UNK
     Route: 048
     Dates: start: 20160412, end: 20160415
  8. MELPHALAN [Suspect]
     Active Substance: MELPHALAN
     Dosage: 16 MG, UNK
     Route: 048
     Dates: start: 20160524, end: 20160527
  9. VELCADE [Suspect]
     Active Substance: BORTEZOMIB
     Dosage: 2.43 MG, 1/WEEK
     Route: 065
     Dates: start: 20160317, end: 20160401
  10. VELCADE [Suspect]
     Active Substance: BORTEZOMIB
     Dosage: 2.42 MG, 1/WEEK
     Route: 065
     Dates: start: 20160927, end: 20161025
  11. PREDNISONE. [Suspect]
     Active Substance: PREDNISONE
     Dosage: 100 MG, 1/WEEK
     Route: 042
     Dates: start: 20160412, end: 20160415
  12. MELPHALAN [Suspect]
     Active Substance: MELPHALAN
     Dosage: 16 MG, UNK
     Route: 048
     Dates: end: 20160708
  13. METFORMINE [Concomitant]
     Active Substance: METFORMIN HYDROCHLORIDE
     Indication: DIABETES MELLITUS
     Dosage: 850 MG, QD
     Route: 048
  14. METOCLOPRAMIDE. [Concomitant]
     Active Substance: METOCLOPRAMIDE
     Indication: VOMITING
     Dosage: 5 MG, TID
     Route: 042
     Dates: start: 20160713, end: 20160714
  15. DARATUMUMAB [Suspect]
     Active Substance: DARATUMUMAB
     Indication: PLASMA CELL MYELOMA
     Dosage: 1264 MG, 1/WEEK
     Route: 042
     Dates: start: 20160226
  16. VELCADE [Suspect]
     Active Substance: BORTEZOMIB
     Dosage: 1.8 MG, 1/WEEK
     Route: 065
     Dates: start: 20160412, end: 20160823
  17. PREDNISONE. [Suspect]
     Active Substance: PREDNISONE
     Dosage: 100 MG, 1/WEEK
     Route: 042
     Dates: start: 20160524, end: 20160527
  18. PREDNISONE. [Suspect]
     Active Substance: PREDNISONE
     Dosage: 100 MG, 1/WEEK
     Route: 042
     Dates: end: 20160705
  19. DARATUMUMAB [Suspect]
     Active Substance: DARATUMUMAB
     Dosage: 1264 MG, 1/WEEK
     Route: 042
     Dates: end: 20160705
  20. DILTIAZEM. [Concomitant]
     Active Substance: DILTIAZEM
     Indication: HYPERTENSION
     Dosage: 60 MG, TID
     Route: 048
  21. SALINE                             /00075401/ [Concomitant]
     Active Substance: SODIUM CHLORIDE
     Indication: VOMITING
     Dosage: UNK
     Route: 065
     Dates: start: 20160713, end: 20160714

REACTIONS (5)
  - Epiglottitis [Recovered/Resolved]
  - Sepsis [Unknown]
  - Nausea [Unknown]
  - Neutropenia [Unknown]
  - Conjunctival haemorrhage [Unknown]

NARRATIVE: CASE EVENT DATE: 20160307
